FAERS Safety Report 20743343 (Version 1)
Quarter: 2022Q2

REPORT INFORMATION
  Report Type: Spontaneous
  Country: US (occurrence: US)
  Receive Date: 20220425
  Receipt Date: 20220425
  Transmission Date: 20220721
  Serious: No
  Sender: FDA-Public Use
  Company Number: US-ViiV Healthcare Limited-78250

PATIENT
  Age: 36 Year
  Sex: Female

DRUGS (2)
  1. RILPIVIRINE [Suspect]
     Active Substance: RILPIVIRINE
     Indication: Product used for unknown indication
     Dosage: UNK, SINGLE 600-MG (3-ML)/900-MG (3-ML)
     Route: 030
     Dates: start: 20220405
  2. CABOTEGRAVIR [Suspect]
     Active Substance: CABOTEGRAVIR
     Indication: Product used for unknown indication
     Dosage: UNK, SINGLE 600-MG (3-ML)/900-MG (3-ML)
     Route: 030
     Dates: start: 20220405

REACTIONS (2)
  - Fatigue [Recovered/Resolved]
  - Injection site joint swelling [Recovered/Resolved]

NARRATIVE: CASE EVENT DATE: 20220405
